FAERS Safety Report 14445217 (Version 2)
Quarter: 2018Q2

REPORT INFORMATION
  Report Type: Spontaneous
  Country: US (occurrence: US)
  Receive Date: 20180126
  Receipt Date: 20180507
  Transmission Date: 20180711
  Serious: Yes (Other)
  Sender: FDA-Public Use
  Company Number: US-009507513-1801USA006392

PATIENT
  Age: 47 Year
  Sex: Female

DRUGS (4)
  1. ISENTRESS [Suspect]
     Active Substance: RALTEGRAVIR POTASSIUM
     Indication: ANTIRETROVIRAL THERAPY
     Dosage: UNK
     Route: 048
  2. RITONAVIR. [Concomitant]
     Active Substance: RITONAVIR
     Indication: ANTIRETROVIRAL THERAPY
  3. EMTRICITABINE [Concomitant]
     Active Substance: EMTRICITABINE
     Indication: ANTIRETROVIRAL THERAPY
  4. ATAZANAVIR. [Concomitant]
     Active Substance: ATAZANAVIR SULFATE
     Indication: ANTIRETROVIRAL THERAPY

REACTIONS (1)
  - Lipodystrophy acquired [Unknown]
